FAERS Safety Report 19563696 (Version 2)
Quarter: 2021Q3

REPORT INFORMATION
  Report Type: Report from Study
  Country: MX (occurrence: MX)
  Receive Date: 20210715
  Receipt Date: 20210730
  Transmission Date: 20211014
  Serious: Yes (Other)
  Sender: FDA-Public Use
  Company Number: MX-SEAGEN-2021SGN03697

PATIENT
  Age: 39 Year
  Sex: Male
  Weight: 54 kg

DRUGS (2)
  1. BRENTUXIMAB VEDOTIN [Suspect]
     Active Substance: BRENTUXIMAB VEDOTIN
     Indication: HODGKIN^S DISEASE
     Dosage: 95 MILLIGRAM
     Route: 042
     Dates: start: 20210129, end: 20210707
  2. BRENTUXIMAB VEDOTIN [Suspect]
     Active Substance: BRENTUXIMAB VEDOTIN
     Dosage: 98 MILLIGRAM
     Route: 042
     Dates: start: 20210602

REACTIONS (1)
  - Hodgkin^s disease [Unknown]

NARRATIVE: CASE EVENT DATE: 20210621
